FAERS Safety Report 5855987-7 (Version None)
Quarter: 2008Q3

REPORT INFORMATION
  Report Type: 
  Country: None (occurrence: None)
  Receive Date: 20080825
  Receipt Date: 20080814
  Transmission Date: 20090109
  Serious: Yes (Life-Threatening, Hospitalization, Other)
  Sender: FDA-Public Use
  Company Number: FI-JNJFOC-20080802263

PATIENT
  Age: 36 Year
  Sex: Female

DRUGS (11)
  1. REMICADE [Suspect]
     Route: 042
  2. REMICADE [Suspect]
     Route: 042
  3. REMICADE [Suspect]
     Indication: ANKYLOSING SPONDYLITIS
     Route: 042
  4. SEROQUEL [Concomitant]
     Indication: MENTAL DISORDER
     Dosage: ^25 MG + 0 + 200 MG/DAY^
  5. OXIKLORIN [Concomitant]
     Indication: RHEUMATOID ARTHRITIS
  6. PREDNISONE TAB [Concomitant]
     Indication: RHEUMATOID ARTHRITIS
  7. SALAZOPYRIN EN [Concomitant]
     Indication: RHEUMATOID ARTHRITIS
  8. KALSIPOS D [Concomitant]
     Indication: RHEUMATOID ARTHRITIS
     Dosage: DURATION= ^SEVERAL YEARS^
  9. CIPRALEX [Concomitant]
     Indication: MENTAL DISORDER
  10. DEPRAKINE DEPOT [Concomitant]
     Indication: MENTAL DISORDER
     Dosage: 500 MG, ^1+ 2 TABLETS/DAY^
  11. OPAMOX [Concomitant]
     Indication: MENTAL DISORDER
     Dosage: 15 MG, ^1X1^, HAS BEEN USED FOR A LONG TIME

REACTIONS (1)
  - SUICIDAL IDEATION [None]
